FAERS Safety Report 12209567 (Version 1)
Quarter: 2016Q1

REPORT INFORMATION
  Report Type: Spontaneous
  Country: CA (occurrence: CA)
  Receive Date: 20160324
  Receipt Date: 20160324
  Transmission Date: 20160526
  Serious: Yes (Other)
  Sender: FDA-Public Use
  Company Number: CA-ROCHE-1730932

PATIENT
  Sex: Female

DRUGS (12)
  1. VENTOLINE [Concomitant]
     Active Substance: ALBUTEROL
  2. ALVESCO [Concomitant]
     Active Substance: CICLESONIDE
  3. VALSARTAN HCT SANDOZ [Suspect]
     Active Substance: HYDROCHLOROTHIAZIDE\VALSARTAN
     Indication: HYPERTENSION
     Dosage: 160/12.5 MG
     Route: 048
     Dates: start: 2014
  4. PREMARIN [Concomitant]
     Active Substance: ESTROGENS, CONJUGATED
  5. XOLAIR [Suspect]
     Active Substance: OMALIZUMAB
     Indication: ASTHMA
     Route: 058
     Dates: start: 20151023
  6. APO-MOMETASONE [Concomitant]
  7. SPIRIVA [Concomitant]
     Active Substance: TIOTROPIUM BROMIDE MONOHYDRATE
  8. SYMBICORT [Concomitant]
     Active Substance: BUDESONIDE\FORMOTEROL FUMARATE DIHYDRATE
  9. APO-MEDROXY [Concomitant]
  10. DILANTIN [Concomitant]
     Active Substance: PHENYTOIN
  11. AZITHROMYCIN ANHYDROUS. [Concomitant]
     Active Substance: AZITHROMYCIN ANHYDROUS
     Route: 065
  12. DILTIAZEM [Concomitant]
     Active Substance: DILTIAZEM

REACTIONS (2)
  - Breast pain [Not Recovered/Not Resolved]
  - Lung infection [Unknown]
